FAERS Safety Report 8885858 (Version 1)
Quarter: 2012Q4

REPORT INFORMATION
  Report Type: 
  Country: CA (occurrence: CA)
  Receive Date: 20121101
  Receipt Date: 20121101
  Transmission Date: 20130627
  Serious: Yes (Other)
  Sender: FDA-Public Use
  Company Number: PHHY2007CA00939

PATIENT
  Sex: Female

DRUGS (1)
  1. SANDOSTATIN LAR [Suspect]
     Indication: CARCINOID TUMOUR
     Dosage: 20 mg, every 4 weeks
     Route: 030
     Dates: start: 20071207

REACTIONS (4)
  - General physical health deterioration [Unknown]
  - Terminal state [Unknown]
  - Blood pressure diastolic decreased [Unknown]
  - Heart rate increased [Unknown]
